FAERS Safety Report 4983761-2 (Version None)
Quarter: 2006Q1

REPORT INFORMATION
  Report Type: 
  Country: None (occurrence: None)
  Receive Date: 20060301
  Receipt Date: 20051221
  Transmission Date: 20060701
  Serious: No
  Sender: FDA-Public Use
  Company Number: S05-USA-05346-01

PATIENT
  Age: 77 Year
  Sex: Female

DRUGS (19)
  1. NAMENDA [Suspect]
     Indication: MEMORY IMPAIRMENT
     Dosage: 5 MG QD PO
     Route: 048
     Dates: start: 20051111, end: 20051117
  2. NAMENDA [Suspect]
     Indication: MEMORY IMPAIRMENT
     Dosage: 5 MG BID PO
     Route: 048
     Dates: start: 20051118, end: 20051124
  3. NAMENDA [Suspect]
     Indication: MEMORY IMPAIRMENT
     Dosage: 15 MG QD PO
     Route: 048
     Dates: start: 20051125, end: 20051201
  4. NAMENDA [Suspect]
     Indication: MEMORY IMPAIRMENT
     Dosage: 10 MG BID PO
     Route: 048
     Dates: start: 20051202, end: 20051214
  5. ARICEPT [Concomitant]
  6. LIPITOR [Concomitant]
  7. ATAMET (CARBIDOPA, LEVODOPA) [Concomitant]
  8. FOSAMAX [Concomitant]
  9. CALTRATE (CALCIUM CARBONATE) [Concomitant]
  10. MICARDIS [Concomitant]
  11. GLUCOSAMINE [Concomitant]
  12. METANX (FOLATE, VITAMIN B6, VITAMIN B12) [Concomitant]
  13. ATENOLOL [Concomitant]
  14. AVALIDE [Concomitant]
  15. CHONDROITIN [Concomitant]
  16. VITAMIN E [Concomitant]
  17. ASCORBIC ACID [Concomitant]
  18. COENZYME Q10 [Concomitant]
  19. THERAGRAN (MULTI VITAMIN) [Concomitant]

REACTIONS (1)
  - DEPRESSION [None]
